FAERS Safety Report 10067372 (Version 2)
Quarter: 2014Q2

REPORT INFORMATION
  Report Type: Spontaneous
  Country: US (occurrence: US)
  Receive Date: 20140409
  Receipt Date: 20140409
  Transmission Date: 20141212
  Serious: Yes (Other)
  Sender: FDA-Public Use
  Company Number: US-SA-FABR-1003400

PATIENT
  Age: 50 Year
  Sex: Male
  Weight: 59 kg

DRUGS (11)
  1. AGALSIDASE BETA [Suspect]
     Indication: FABRY^S DISEASE
     Dosage: 60 MG, Q2W
     Route: 042
     Dates: start: 20070703
  2. DIPHENHYDRAMINE [Concomitant]
     Indication: PREMEDICATION
     Dosage: UNK
  3. VIMPAT [Concomitant]
     Dosage: 50 MG, QD
  4. FUROSEMIDE [Concomitant]
     Dosage: 160 MG, QD
  5. POTASSIUM [Concomitant]
     Dosage: UNK
  6. BACLOFEN [Concomitant]
     Dosage: UNK
  7. CALCITONIN [Concomitant]
     Dosage: 2 TABLETS 3X/W
  8. SEVELAMER CARBONATE [Concomitant]
     Indication: HYPERPHOSPHATAEMIA
     Dosage: 0.8 G, UNK 4 TO 6 WITH MEALS
  9. ACETAMINOPHEN [Concomitant]
     Indication: PREMEDICATION
  10. CALCIUM ACETATE [Concomitant]
  11. MVI [Concomitant]

REACTIONS (2)
  - Renal failure [Not Recovered/Not Resolved]
  - Deafness [Not Recovered/Not Resolved]
